FAERS Safety Report 14182104 (Version 1)
Quarter: 2017Q4

REPORT INFORMATION
  Report Type: Spontaneous
  Country: CH (occurrence: CH)
  Receive Date: 20171113
  Receipt Date: 20171113
  Transmission Date: 20180321
  Serious: Yes (Hospitalization)
  Sender: FDA-Public Use
  Company Number: CH-ROCHE-2021008

PATIENT
  Age: 14 Year
  Sex: Male

DRUGS (17)
  1. POTASSIUM ACETATE. [Concomitant]
     Active Substance: POTASSIUM ACETATE
  2. PARACETAMOL [Concomitant]
     Active Substance: ACETAMINOPHEN
  3. CEFEPIME [Concomitant]
     Active Substance: CEFEPIME HYDROCHLORIDE
  4. POSACONAZOLE [Concomitant]
     Active Substance: POSACONAZOLE
  5. AMIKACIN [Concomitant]
     Active Substance: AMIKACIN
  6. EPINEPHRINE. [Concomitant]
     Active Substance: EPINEPHRINE
  7. ACTEMRA [Suspect]
     Active Substance: TOCILIZUMAB
     Indication: CYTOKINE RELEASE SYNDROME
     Dosage: DOSAGE IS UNCERTAIN.
     Route: 042
     Dates: start: 20151124
  8. VANCOMYCIN [Concomitant]
     Active Substance: VANCOMYCIN
  9. SODIUM PHOSPHATE [Concomitant]
     Active Substance: SODIUM PHOSPHATE
  10. DOPAMINE [Concomitant]
     Active Substance: DOPAMINE\DOPAMINE HYDROCHLORIDE
  11. NOREPINEPHRINE. [Concomitant]
     Active Substance: NOREPINEPHRINE
  12. TISAGENLECLEUCEL. [Suspect]
     Active Substance: TISAGENLECLEUCEL
     Indication: B-CELL TYPE ACUTE LEUKAEMIA
     Dosage: DOSAGE IS UNCERTAIN.
     Route: 041
     Dates: start: 20151118
  13. MEROPENEM. [Concomitant]
     Active Substance: MEROPENEM
  14. LORAZEPAM. [Concomitant]
     Active Substance: LORAZEPAM
  15. PETHIDINE [Concomitant]
     Active Substance: MEPERIDINE
  16. SODIUM ACETATE. [Concomitant]
     Active Substance: SODIUM ACETATE
  17. SODIUM BICARBONATE. [Concomitant]
     Active Substance: SODIUM BICARBONATE

REACTIONS (4)
  - Upper respiratory tract infection [Recovered/Resolved]
  - Pyrexia [Recovered/Resolved]
  - Respiratory syncytial virus infection [Recovered/Resolved]
  - Tumour lysis syndrome [Recovered/Resolved]

NARRATIVE: CASE EVENT DATE: 20151125
